FAERS Safety Report 5026150-7 (Version None)
Quarter: 2006Q2

REPORT INFORMATION
  Report Type: 
  Country: None (occurrence: None)
  Receive Date: 20060608
  Receipt Date: 20020509
  Transmission Date: 20061013
  Serious: No
  Sender: FDA-Public Use
  Company Number: 2002-05-0738

PATIENT
  Sex: Female
  Weight: 102 kg

DRUGS (13)
  1. ETHYOL [Suspect]
     Indication: ADVERSE DRUG REACTION
     Dosage: SUBCUTANEOUS
     Route: 058
     Dates: start: 20020318, end: 20020415
  2. RADIATION THERAPY [Suspect]
     Indication: TONSIL CANCER
     Dosage: OTHER
  3. AMARYL [Concomitant]
  4. LASIX [Concomitant]
  5. ATIVAN [Concomitant]
  6. ACIPHEX [Concomitant]
  7. PROVENTIL [Concomitant]
  8. TYLENOL (CAPLET) [Concomitant]
  9. IBUPROFEN [Concomitant]
  10. PHENERGAN HCL [Concomitant]
  11. FLEXERIL [Concomitant]
  12. CEFTIN [Concomitant]
  13. BACTRIM [Concomitant]

REACTIONS (5)
  - EATING DISORDER [None]
  - NAUSEA [None]
  - SALIVA ALTERED [None]
  - SALIVARY HYPERSECRETION [None]
  - VOMITING [None]
